FAERS Safety Report 9921045 (Version 2)
Quarter: 2014Q1

REPORT INFORMATION
  Report Type: Spontaneous
  Country: DE (occurrence: DE)
  Receive Date: 20140225
  Receipt Date: 20140225
  Transmission Date: 20141002
  Serious: Yes (Hospitalization, Other)
  Sender: FDA-Public Use
  Company Number: DE-AMGEN-DEUSP2014005879

PATIENT
  Age: 49 Year
  Sex: Male

DRUGS (3)
  1. ENBREL [Suspect]
     Indication: PSORIATIC ARTHROPATHY
     Dosage: 50 MG, WEEKLY
     Route: 058
     Dates: start: 201207
  2. MTX /00113801/ [Suspect]
     Indication: PSORIATIC ARTHROPATHY
     Dosage: 12.5 MG, WEEKLY
     Route: 058
  3. DICLOFENAC [Concomitant]
     Indication: PSORIATIC ARTHROPATHY
     Dosage: UNK, AS NECESSARY
     Route: 048

REACTIONS (4)
  - Pleurisy [Not Recovered/Not Resolved]
  - Pleural effusion [Unknown]
  - Cough [Unknown]
  - Tuberculosis [Not Recovered/Not Resolved]
